FAERS Safety Report 13517773 (Version 3)
Quarter: 2017Q2

REPORT INFORMATION
  Report Type: Spontaneous
  Country: US (occurrence: US)
  Receive Date: 20170505
  Receipt Date: 20170526
  Transmission Date: 20170830
  Serious: Yes (Death, Hospitalization, Other)
  Sender: FDA-Public Use
  Company Number: US-009507513-1705USA000856

PATIENT
  Age: 51 Year
  Sex: Male
  Weight: 70.4 kg

DRUGS (13)
  1. CAPECITABINE. [Concomitant]
     Active Substance: CAPECITABINE
     Indication: COUGH
  2. DOCETAXEL. [Concomitant]
     Active Substance: DOCETAXEL
     Indication: COUGH
     Dosage: 8 MG, UNK
     Route: 048
     Dates: start: 20170322
  3. DOCETAXEL. [Concomitant]
     Active Substance: DOCETAXEL
     Indication: RADIOTHERAPY
  4. CISPLATIN. [Concomitant]
     Active Substance: CISPLATIN
     Indication: DYSPNOEA
  5. CAPECITABINE. [Concomitant]
     Active Substance: CAPECITABINE
     Indication: PAIN
  6. DOCETAXEL. [Concomitant]
     Active Substance: DOCETAXEL
     Indication: DYSPNOEA
  7. CISPLATIN. [Concomitant]
     Active Substance: CISPLATIN
     Indication: COUGH
     Dosage: 8 MG,
     Route: 048
     Dates: start: 20170322
  8. KEYTRUDA [Suspect]
     Active Substance: PEMBROLIZUMAB
     Indication: NON-SMALL CELL LUNG CANCER
     Dosage: 200 MG, ONCE
     Route: 042
     Dates: start: 20170412, end: 20170412
  9. DOCETAXEL. [Concomitant]
     Active Substance: DOCETAXEL
     Indication: PAIN
  10. CAPECITABINE. [Concomitant]
     Active Substance: CAPECITABINE
     Indication: RADIOTHERAPY
  11. CISPLATIN. [Concomitant]
     Active Substance: CISPLATIN
     Indication: RADIOTHERAPY
  12. CISPLATIN. [Concomitant]
     Active Substance: CISPLATIN
     Indication: PAIN
  13. CAPECITABINE. [Concomitant]
     Active Substance: CAPECITABINE
     Indication: DYSPNOEA

REACTIONS (8)
  - Pneumonia [Unknown]
  - Radiation pneumonitis [Unknown]
  - Hypoxia [Not Recovered/Not Resolved]
  - Death [Fatal]
  - Respiratory disorder [Not Recovered/Not Resolved]
  - Pyrexia [Unknown]
  - Dyspnoea [Unknown]
  - Sepsis [Unknown]

NARRATIVE: CASE EVENT DATE: 2017
